FAERS Safety Report 13733805 (Version 2)
Quarter: 2017Q4

REPORT INFORMATION
  Report Type: Report from Study
  Country: None (occurrence: GT)
  Receive Date: 20170707
  Receipt Date: 20171103
  Transmission Date: 20180320
  Serious: Yes (Hospitalization, Other)
  Sender: FDA-Public Use
  Company Number: GT-ABBVIE-17P-069-2029729-00

PATIENT
  Age: 33 Year
  Sex: Male

DRUGS (4)
  1. IRON [Concomitant]
     Active Substance: IRON
     Indication: PRODUCT USED FOR UNKNOWN INDICATION
  2. CINACALCET [Concomitant]
     Active Substance: CINACALCET
     Indication: PRODUCT USED FOR UNKNOWN INDICATION
  3. ERYTHROPOIETIN [Concomitant]
     Active Substance: ERYTHROPOIETIN
     Indication: PRODUCT USED FOR UNKNOWN INDICATION
  4. ZEMPLAR [Suspect]
     Active Substance: PARICALCITOL
     Indication: HYPERPARATHYROIDISM SECONDARY
     Route: 042
     Dates: start: 20160801

REACTIONS (6)
  - Blood parathyroid hormone increased [Recovering/Resolving]
  - Arteriovenous fistula site infection [Recovering/Resolving]
  - Infection [Not Recovered/Not Resolved]
  - Ulcer [Recovering/Resolving]
  - Arteriovenous fistula site complication [Recovering/Resolving]
  - Thrombosis in device [Not Recovered/Not Resolved]

NARRATIVE: CASE EVENT DATE: 20170915
